FAERS Safety Report 8908048 (Version 2)
Quarter: 2012Q4

REPORT INFORMATION
  Report Type: 
  Country: US (occurrence: US)
  Receive Date: 20121113
  Receipt Date: 20121221
  Transmission Date: 20130627
  Serious: Yes (Hospitalization, Other)
  Sender: FDA-Public Use
  Company Number: US-AMGEN-USASP2012071777

PATIENT
  Age: 91 Year
  Sex: Male
  Weight: 63.04 kg

DRUGS (9)
  1. PROLIA [Suspect]
     Indication: OSTEOPENIA
     Dosage: 60 mg, one time dose
     Route: 058
     Dates: start: 20121102, end: 20121102
  2. PLAVIX [Concomitant]
  3. DILANTIN                           /00017401/ [Concomitant]
     Indication: CONVULSION
     Dosage: UNK
     Route: 048
     Dates: start: 1992
  4. ATORVASTATIN [Concomitant]
     Indication: HYPERLIPIDAEMIA
     Dosage: 80 mg, qd
     Route: 048
     Dates: start: 20080225
  5. LEVOTHYROXINE [Concomitant]
     Indication: HYPOTHYROIDISM
     Dosage: 175 mug, qd
     Route: 048
     Dates: start: 20050719
  6. LUPRON [Concomitant]
     Indication: HORMONE THERAPY
  7. FLUTAMIDE [Concomitant]
     Indication: HORMONE THERAPY
  8. FINASTERIDE [Concomitant]
     Indication: PROPHYLAXIS
     Dosage: 5 mg, qd
     Route: 048
     Dates: start: 20100714
  9. HYDROCHLOORTHIAZIDE [Concomitant]
     Indication: HYPERTENSION
     Dosage: 25 mg, UNK
     Route: 048
     Dates: start: 20120104

REACTIONS (2)
  - Hypocalcaemia [Recovered/Resolved]
  - Electrocardiogram QT prolonged [Recovered/Resolved]
